FAERS Safety Report 6909786-5 (Version None)
Quarter: 2010Q3

REPORT INFORMATION
  Report Type: 
  Country: None (occurrence: None)
  Receive Date: 20100806
  Receipt Date: 20100728
  Transmission Date: 20110219
  Serious: Yes (Hospitalization, Other)
  Sender: FDA-Public Use
  Company Number: 2008BI007034

PATIENT
  Age: 56 Year
  Sex: Female
  Weight: 83 kg

DRUGS (3)
  1. AVONEX [Suspect]
     Indication: MULTIPLE SCLEROSIS
     Route: 030
     Dates: start: 19960101, end: 20030101
  2. AVONEX [Suspect]
     Route: 030
     Dates: start: 20030101, end: 20070801
  3. AVONEX [Suspect]
     Route: 030
     Dates: start: 20080201, end: 20090101

REACTIONS (10)
  - CONTUSION [None]
  - CONVULSION [None]
  - FALL [None]
  - INFLUENZA LIKE ILLNESS [None]
  - INTRACRANIAL ANEURYSM [None]
  - JOINT DISLOCATION [None]
  - MEMORY IMPAIRMENT [None]
  - POST PROCEDURAL STROKE [None]
  - ROAD TRAFFIC ACCIDENT [None]
  - ROTATOR CUFF SYNDROME [None]
